FAERS Safety Report 21815141 (Version 1)
Quarter: 2023Q1

REPORT INFORMATION
  Report Type: Spontaneous
  Country: IT (occurrence: IT)
  Receive Date: 20230104
  Receipt Date: 20230104
  Transmission Date: 20230417
  Serious: Yes (Other)
  Sender: FDA-Public Use
  Company Number: None

PATIENT
  Age: 50 Year
  Sex: Male

DRUGS (3)
  1. ADALIMUMAB [Suspect]
     Active Substance: ADALIMUMAB
     Indication: Colitis ulcerative
     Dosage: THE PATIENT UNDERWENT AN INDUCTION CYCLE WITH ADALIMUMAB AT ANOTHER STRUCTURE.
     Route: 058
     Dates: start: 20210302, end: 20210902
  2. XELJANZ [Suspect]
     Active Substance: TOFACITINIB CITRATE
     Indication: Colitis ulcerative
     Dosage: 10 MG/2 DAY FOR 16 WEEKS THEN 5 MG/2 DAY
     Route: 048
     Dates: start: 20211002, end: 20221025
  3. INFLIXIMAB [Suspect]
     Active Substance: INFLIXIMAB
     Indication: Colitis ulcerative
     Dosage: IN 2022 (25-NOV AND 7-DEC) PERFORM TWO INFUSIONS. THE SECOND INTERRUPTED FOR ADR
     Route: 040
     Dates: start: 20221125, end: 20221207

REACTIONS (1)
  - Superficial spreading melanoma stage unspecified [Unknown]

NARRATIVE: CASE EVENT DATE: 20220501
